FAERS Safety Report 7533495-5 (Version None)
Quarter: 2011Q2

REPORT INFORMATION
  Report Type: 
  Country: None (occurrence: None)
  Receive Date: 20110608
  Receipt Date: 20060103
  Transmission Date: 20111010
  Serious: Yes (Other)
  Sender: FDA-Public Use
  Company Number: PHFR2005GB03796

PATIENT
  Sex: Female

DRUGS (1)
  1. CLOZAPINE [Suspect]
     Indication: SCHIZOPHRENIA
     Dosage: 450MG DAILY
     Route: 065
     Dates: start: 19930209

REACTIONS (3)
  - ABDOMINAL DISTENSION [None]
  - RENAL MASS [None]
  - URINARY INCONTINENCE [None]
